FAERS Safety Report 6396608-7 (Version None)
Quarter: 2009Q4

REPORT INFORMATION
  Report Type: 
  Country: None (occurrence: None)
  Receive Date: 20091012
  Receipt Date: 20090817
  Transmission Date: 20100525
  Serious: No
  Sender: FDA-Public Use
  Company Number: US-ASTRAZENECA-2009SE08502

PATIENT
  Sex: Female

DRUGS (1)
  1. SYMBICORT [Suspect]
     Dosage: 2 PUFFS BID
     Route: 055
     Dates: start: 20090806

REACTIONS (2)
  - DEVICE INEFFECTIVE [None]
  - DRUG DOSE OMISSION [None]
